FAERS Safety Report 24554805 (Version 1)
Quarter: 2024Q4

REPORT INFORMATION
  Report Type: Spontaneous
  Country: GB (occurrence: GB)
  Receive Date: 20241028
  Receipt Date: 20241028
  Transmission Date: 20250114
  Serious: Yes (Other)
  Sender: CIPLA
  Company Number: GB-CIPLA LTD.-2024GB12109

PATIENT

DRUGS (1)
  1. RIVAROXABAN [Suspect]
     Active Substance: RIVAROXABAN
     Indication: Deep vein thrombosis
     Dosage: UNK
     Route: 065

REACTIONS (2)
  - Adrenal haemorrhage [Recovered/Resolved]
  - Antiphospholipid syndrome [Unknown]
